FAERS Safety Report 8729887 (Version 3)
Quarter: 2013Q1

REPORT INFORMATION
  Report Type: Spontaneous
  Country: US (occurrence: US)
  Receive Date: 20120817
  Receipt Date: 20130321
  Transmission Date: 20140127
  Serious: Yes (Congenital Anomaly)
  Sender: FDA-Public Use
  Company Number: US-GLAXOSMITHKLINE-A0989785A

PATIENT
  Age: 0 Year
  Sex: Male

DRUGS (3)
  1. PAXIL [Suspect]
     Indication: BIPOLAR DISORDER
     Route: 064
     Dates: end: 20070410
  2. DEPAKOTE [Concomitant]
     Indication: BIPOLAR DISORDER
     Route: 064
     Dates: end: 20070410
  3. BIRTH CONTROL PILLS [Concomitant]
     Route: 064
     Dates: end: 199703

REACTIONS (2)
  - Talipes [Unknown]
  - Foetal exposure during pregnancy [Unknown]
